FAERS Safety Report 17693651 (Version 1)
Quarter: 2020Q2

REPORT INFORMATION
  Report Type: Spontaneous
  Country: NL (occurrence: NL)
  Receive Date: 20200422
  Receipt Date: 20200422
  Transmission Date: 20200714
  Serious: Yes (Hospitalization, Other)
  Sender: FDA-Public Use
  Company Number: NL-MICRO LABS LIMITED-ML2020-01381

PATIENT
  Age: 27 Year
  Sex: Female

DRUGS (7)
  1. FIBRINOGEN CONCENTRATE (HUMAN) [Suspect]
     Active Substance: FIBRINOGEN HUMAN
     Indication: FACTOR I DEFICIENCY
     Dosage: (50 MG/KG)
     Route: 065
  2. FIBRINOGEN CONCENTRATE (HUMAN) [Suspect]
     Active Substance: FIBRINOGEN HUMAN
     Dosage: (50 MG/KG)
     Route: 065
  3. FIBRINOGEN CONCENTRATE (HUMAN) [Suspect]
     Active Substance: FIBRINOGEN HUMAN
     Dosage: (50 MG/KG)
     Route: 065
  4. MISOPROSTOL. [Concomitant]
     Active Substance: MISOPROSTOL
     Indication: POSTPARTUM HAEMORRHAGE
  5. TRANEXAMIC ACID. [Suspect]
     Active Substance: TRANEXAMIC ACID
     Indication: POSTPARTUM HAEMORRHAGE
     Dosage: 17 MG/KG
     Route: 065
  6. FIBRINOGEN CONCENTRATE (HUMAN) [Suspect]
     Active Substance: FIBRINOGEN HUMAN
     Dosage: 33 MG/KG
     Route: 065
  7. OXYTOCIN. [Concomitant]
     Active Substance: OXYTOCIN
     Indication: POSTPARTUM HAEMORRHAGE

REACTIONS (2)
  - Thrombophlebitis [Recovering/Resolving]
  - Thrombosis [Recovering/Resolving]
